FAERS Safety Report 23354335 (Version 2)
Quarter: 2024Q1

REPORT INFORMATION
  Report Type: Spontaneous
  Country: US (occurrence: US)
  Receive Date: 20240101
  Receipt Date: 20240105
  Transmission Date: 20240409
  Serious: Yes (Other)
  Sender: FDA-Public Use
  Company Number: US-MLMSERVICE-20231215-4729440-1

PATIENT
  Age: 71 Year
  Sex: Female

DRUGS (5)
  1. FLUOROURACIL [Suspect]
     Active Substance: FLUOROURACIL
     Indication: Malignant melanoma
     Dosage: TWICE DAILY FOR FOUR WEEKS
     Route: 061
  2. CALCIPOTRIENE [Suspect]
     Active Substance: CALCIPOTRIENE
     Indication: Malignant melanoma
     Dosage: TWICE DAILY FOR FOUR WEEKS
     Route: 061
  3. FLUOROURACIL [Suspect]
     Active Substance: FLUOROURACIL
     Indication: Actinic keratosis
     Dosage: TWICE DAILY FOR FOUR WEEKS
     Route: 061
  4. FLUOROURACIL [Suspect]
     Active Substance: FLUOROURACIL
     Indication: Skin cancer
     Dosage: TWICE DAILY FOR FOUR WEEKS
     Route: 061
  5. CALCIPOTRIENE [Suspect]
     Active Substance: CALCIPOTRIENE
     Indication: Skin cancer
     Dosage: TWICE DAILY FOR FOUR WEEKS
     Route: 061

REACTIONS (3)
  - Inflammation [Unknown]
  - Keratoacanthoma [Recovered/Resolved]
  - Off label use [Unknown]
